FAERS Safety Report 9201698 (Version 1)
Quarter: 2013Q2

REPORT INFORMATION
  Report Type: Spontaneous
  Country: JP (occurrence: JP)
  Receive Date: 20130401
  Receipt Date: 20130401
  Transmission Date: 20140414
  Serious: Yes (Other)
  Sender: FDA-Public Use
  Company Number: PHHY2013JP031450

PATIENT
  Age: 77 Year
  Sex: Female

DRUGS (1)
  1. NEORAL [Suspect]
     Route: 048

REACTIONS (5)
  - Diabetes mellitus [Unknown]
  - Polymyositis [Unknown]
  - Rectosigmoid cancer metastatic [Unknown]
  - Hepatic cancer metastatic [Unknown]
  - Bile duct cancer [Unknown]
